FAERS Safety Report 5177211-3 (Version None)
Quarter: 2006Q4

REPORT INFORMATION
  Report Type: 
  Country: None (occurrence: None)
  Receive Date: 20061218
  Receipt Date: 20061011
  Transmission Date: 20070319
  Serious: No
  Sender: FDA-Public Use
  Company Number: US-ELI_LILLY_AND_COMPANY-US200610002385

PATIENT
  Age: 66 Year
  Sex: Male
  Weight: 132.43 kg

DRUGS (7)
  1. PLENDIL                                 /SWE/ [Concomitant]
  2. GABAPENTIN [Concomitant]
  3. TERAZOSIN HCL [Concomitant]
  4. VOLTAREN                                /SCH/ [Concomitant]
  5. OXYCODONE HCL [Concomitant]
     Dates: start: 20051001
  6. CYMBALTA [Suspect]
     Indication: POLYNEUROPATHY
     Dosage: 30 MG, UNK
     Dates: start: 20060313, end: 20060601
  7. CYMBALTA [Suspect]
     Dosage: 60 MG, UNK

REACTIONS (3)
  - ALANINE AMINOTRANSFERASE INCREASED [None]
  - ASPARTATE AMINOTRANSFERASE INCREASED [None]
  - PARAESTHESIA [None]
